FAERS Safety Report 17062665 (Version 1)
Quarter: 2019Q4

REPORT INFORMATION
  Report Type: Spontaneous
  Country: NL (occurrence: NL)
  Receive Date: 20191122
  Receipt Date: 20191122
  Transmission Date: 20200122
  Serious: Yes (Other)
  Sender: FDA-Public Use
  Company Number: NL-SUN PHARMACEUTICAL INDUSTRIES LTD-2019RR-228593

PATIENT
  Age: 65 Year
  Sex: Male
  Weight: 92 kg

DRUGS (8)
  1. ISOSORBIDEDINITRAAT CF TABLET 5 MGISOSORBIDEDINITRAAT CF TABLET 5MG [Concomitant]
     Indication: PRODUCT USED FOR UNKNOWN INDICATION
     Dosage: 3 DD 1 ZN
     Route: 050
  2. CARBASALAATCALCIUM CARDIO MYLAN SACHET 100 MGCARBASALAATCALCIUM CAR [Concomitant]
     Indication: PRODUCT USED FOR UNKNOWN INDICATION
     Dosage: 1 DD 1
     Route: 050
  3. METFORMINE HCL TEVA TABLET 500 MGMETFORMINE HCL TEVA TABLET  500MGM... [Concomitant]
     Indication: PRODUCT USED FOR UNKNOWN INDICATION
     Dosage: 500 MILLIGRAM, TID
     Route: 050
  4. SPIRONOLACTON TABLET 12,5 MG DCBSPIRONOLACTON TABLET 12,5MG [Concomitant]
     Indication: PRODUCT USED FOR UNKNOWN INDICATION
     Dosage: 1 DD 1
     Route: 050
  5. METOPROLOLOLSUCCINAAT SANDOZ RET 50 MG MGA 47,5 MGMETOPROLOLSUCCINA [Concomitant]
     Indication: PRODUCT USED FOR UNKNOWN INDICATION
     Dosage: 1 DD 1
     Route: 050
  6. CLOPIDOGREL TEVA TABLET FO 75 MG (ALS WATERS)CLOPIDOGREL TEVA TABL [Concomitant]
     Indication: PRODUCT USED FOR UNKNOWN INDICATION
     Dosage: 1 DD 1
     Route: 050
  7. ROSUVASTATIN. [Suspect]
     Active Substance: ROSUVASTATIN
     Indication: BLOOD CHOLESTEROL INCREASED
     Dosage: 5 MILLIGRAM, DAILY
     Route: 050
     Dates: start: 20191018, end: 20191020
  8. OFLOXACINE POS OOGDRUPPELS 3 MG?ML FLACON 5 MLOFLOXACINE POS OOGDRU [Concomitant]
     Indication: PRODUCT USED FOR UNKNOWN INDICATION
     Dosage: 2 DD 1
     Route: 050

REACTIONS (7)
  - Nausea [Recovering/Resolving]
  - Abdominal pain [Recovering/Resolving]
  - Insomnia [Recovering/Resolving]
  - Heart rate irregular [Recovering/Resolving]
  - Nightmare [Recovering/Resolving]
  - Cardiac discomfort [Recovering/Resolving]
  - Myalgia [Recovering/Resolving]

NARRATIVE: CASE EVENT DATE: 20191018
